FAERS Safety Report 25906480 (Version 2)
Quarter: 2025Q4

REPORT INFORMATION
  Report Type: Spontaneous
  Country: EU (occurrence: EU)
  Receive Date: 20251010
  Receipt Date: 20251114
  Transmission Date: 20260118
  Serious: Yes (Death)
  Sender: BOEHRINGER INGELHEIM
  Company Number: EU-BoehringerIngelheim-2024-BI-029232

PATIENT
  Age: 8 Year
  Sex: Female
  Weight: 17.2 kg

DRUGS (4)
  1. OFEV [Suspect]
     Active Substance: NINTEDANIB
     Indication: Pleuroparenchymal fibroelastosis
     Dosage: 2X25MG TWICE DAILY
  2. OFEV [Suspect]
     Active Substance: NINTEDANIB
     Dosage: 3X25 MG TWICE DAILY
  3. OFEV [Suspect]
     Active Substance: NINTEDANIB
  4. HYDROCORTISONE [Concomitant]
     Active Substance: HYDROCORTISONE
     Indication: Product used for unknown indication

REACTIONS (7)
  - Disease progression [Fatal]
  - Pleuroparenchymal fibroelastosis [Fatal]
  - Nausea [Recovered/Resolved]
  - Vomiting [Recovered/Resolved]
  - Diarrhoea [Recovered/Resolved]
  - Off label use [Unknown]
  - Weight increased [Unknown]

NARRATIVE: CASE EVENT DATE: 20250110
